FAERS Safety Report 7305178-8 (Version None)
Quarter: 2011Q1

REPORT INFORMATION
  Report Type: 
  Country: None (occurrence: None)
  Receive Date: 20110222
  Receipt Date: 20110211
  Transmission Date: 20110831
  Serious: Yes (Hospitalization)
  Sender: FDA-Public Use
  Company Number: US-ELI_LILLY_AND_COMPANY-US201006002080

PATIENT
  Sex: Male
  Weight: 61.678 kg

DRUGS (13)
  1. BEVACIZUMAB [Suspect]
     Indication: NON-SMALL CELL LUNG CANCER
     Dosage: 15 MG/KG, OTHER
     Route: 042
     Dates: start: 20100329, end: 20100422
  2. METOPROLOL [Concomitant]
     Indication: HYPERTENSION
     Dates: start: 20100325
  3. PEMETREXED [Suspect]
     Indication: NON-SMALL CELL LUNG CANCER
     Dosage: 500 MG/M2, OTHER
     Route: 042
     Dates: start: 20100329, end: 20100521
  4. COMPAZINE [Concomitant]
     Indication: PREMEDICATION
     Dates: start: 20100329
  5. DEXAMETHASONE [Concomitant]
     Indication: PREMEDICATION
     Dates: start: 20100329
  6. CARBOPLATIN [Suspect]
     Indication: NON-SMALL CELL LUNG CANCER
     Dosage: 6 D/F, OTHER
     Route: 042
     Dates: start: 20100329, end: 20100521
  7. LORTAB [Concomitant]
     Indication: PAIN
     Dates: start: 20100325
  8. VALIUM [Concomitant]
     Indication: ANXIETY
     Dates: start: 20100329
  9. VITAMIN B-12 [Concomitant]
     Indication: PREMEDICATION
     Dates: start: 20100325
  10. FOLIC ACID [Concomitant]
     Indication: PREMEDICATION
     Dates: start: 20100323
  11. ZOFRAN [Concomitant]
     Indication: PREMEDICATION
     Dates: start: 20100329
  12. COUMADIN [Concomitant]
     Indication: PROPHYLAXIS
     Dates: start: 20100329
  13. LISINOPRIL [Concomitant]
     Indication: HYPERTENSION
     Dosage: UNK, UNK
     Dates: start: 20100325

REACTIONS (3)
  - DEHYDRATION [None]
  - ANAEMIA [None]
  - FATIGUE [None]
